FAERS Safety Report 23038582 (Version 3)
Quarter: 2024Q1

REPORT INFORMATION
  Report Type: Spontaneous
  Country: PL (occurrence: PL)
  Receive Date: 20231006
  Receipt Date: 20240125
  Transmission Date: 20240410
  Serious: Yes (Death, Other)
  Sender: FDA-Public Use
  Company Number: PL-SANDOZ-SDZ2023PL033384

PATIENT
  Age: 49 Year
  Sex: Male

DRUGS (64)
  1. RITUXIMAB [Suspect]
     Active Substance: RITUXIMAB
     Indication: Diffuse large B-cell lymphoma
     Route: 042
     Dates: start: 20220607, end: 20220609
  2. RITUXIMAB [Suspect]
     Active Substance: RITUXIMAB
     Dosage: 7TH CYCLE
     Route: 042
     Dates: start: 20210429
  3. RITUXIMAB [Suspect]
     Active Substance: RITUXIMAB
     Dosage: 6TH CYCLE
     Route: 042
     Dates: start: 20210406, end: 20210407
  4. RITUXIMAB [Suspect]
     Active Substance: RITUXIMAB
     Dosage: 5TH CYCLE
     Route: 042
     Dates: start: 20210315, end: 20210316
  5. RITUXIMAB [Suspect]
     Active Substance: RITUXIMAB
     Dosage: 1ST CYCLE
     Route: 042
     Dates: start: 20201215, end: 20201218
  6. RITUXIMAB [Suspect]
     Active Substance: RITUXIMAB
     Dosage: UNK
     Route: 042
     Dates: start: 20220702, end: 20220704
  7. RITUXIMAB [Suspect]
     Active Substance: RITUXIMAB
     Dosage: 8TH CYCLE
     Route: 042
     Dates: start: 20210520, end: 20210521
  8. RITUXIMAB [Suspect]
     Active Substance: RITUXIMAB
     Dosage: 2ND CYCLE
     Route: 042
     Dates: start: 20210105, end: 20210106
  9. RITUXIMAB [Suspect]
     Active Substance: RITUXIMAB
     Dosage: 4TH CYCLE
     Route: 042
     Dates: start: 20210219, end: 20210220
  10. RITUXIMAB [Suspect]
     Active Substance: RITUXIMAB
     Route: 042
     Dates: start: 20220916, end: 20220918
  11. RITUXIMAB [Suspect]
     Active Substance: RITUXIMAB
     Route: 042
     Dates: start: 20221007, end: 20221008
  12. RITUXIMAB [Suspect]
     Active Substance: RITUXIMAB
     Dosage: 3RD CYCLE
     Route: 042
     Dates: start: 20210129, end: 20210130
  13. RITUXIMAB [Suspect]
     Active Substance: RITUXIMAB
     Route: 042
     Dates: start: 20221127, end: 20221129
  14. POLATUZUMAB VEDOTIN [Suspect]
     Active Substance: POLATUZUMAB VEDOTIN
     Indication: Diffuse large B-cell lymphoma
     Route: 065
  15. DEXAMETHASONE [Suspect]
     Active Substance: DEXAMETHASONE
     Indication: Diffuse large B-cell lymphoma
     Route: 065
     Dates: start: 20220607, end: 20220609
  16. DEXAMETHASONE [Suspect]
     Active Substance: DEXAMETHASONE
     Route: 065
     Dates: start: 20220702, end: 20220704
  17. CYCLOPHOSPHAMIDE [Suspect]
     Active Substance: CYCLOPHOSPHAMIDE
     Indication: Diffuse large B-cell lymphoma
     Dosage: 7TH CYCLE
     Route: 065
     Dates: start: 20210429
  18. CYCLOPHOSPHAMIDE [Suspect]
     Active Substance: CYCLOPHOSPHAMIDE
     Dosage: 3RD CYCLE
     Route: 065
     Dates: start: 20210129, end: 20210130
  19. CYCLOPHOSPHAMIDE [Suspect]
     Active Substance: CYCLOPHOSPHAMIDE
     Dosage: 5TH CYCLE
     Route: 065
     Dates: start: 20210315, end: 20210316
  20. CYCLOPHOSPHAMIDE [Suspect]
     Active Substance: CYCLOPHOSPHAMIDE
     Dosage: 2ND CYCLE
     Route: 065
     Dates: start: 20210105, end: 20210106
  21. CYCLOPHOSPHAMIDE [Suspect]
     Active Substance: CYCLOPHOSPHAMIDE
     Dosage: 1ST CYCLE
     Route: 065
     Dates: start: 20201215, end: 20201218
  22. CYCLOPHOSPHAMIDE [Suspect]
     Active Substance: CYCLOPHOSPHAMIDE
     Dosage: 4TH CYCLE
     Route: 065
     Dates: start: 20210219, end: 20210220
  23. CYCLOPHOSPHAMIDE [Suspect]
     Active Substance: CYCLOPHOSPHAMIDE
     Dosage: 8TH CYCLE
     Route: 065
     Dates: start: 20210520, end: 20210521
  24. CYCLOPHOSPHAMIDE [Suspect]
     Active Substance: CYCLOPHOSPHAMIDE
     Dosage: 6TH CYCLE
     Route: 065
     Dates: start: 20210406, end: 20210407
  25. DOXORUBICIN [Suspect]
     Active Substance: DOXORUBICIN
     Indication: Diffuse large B-cell lymphoma
     Dosage: 2ND CYCLE
     Route: 065
     Dates: start: 20210105, end: 20210106
  26. DOXORUBICIN [Suspect]
     Active Substance: DOXORUBICIN
     Dosage: 6TH CYCLE
     Route: 065
     Dates: start: 20210406, end: 20210407
  27. DOXORUBICIN [Suspect]
     Active Substance: DOXORUBICIN
     Dosage: 5TH CYCLE
     Route: 065
     Dates: start: 20210315, end: 20210316
  28. DOXORUBICIN [Suspect]
     Active Substance: DOXORUBICIN
     Dosage: 4TH CYCLE
     Route: 065
     Dates: start: 20210219, end: 20210220
  29. DOXORUBICIN [Suspect]
     Active Substance: DOXORUBICIN
     Dosage: 3RD CYCLE
     Route: 065
     Dates: start: 20210129, end: 20210130
  30. DOXORUBICIN [Suspect]
     Active Substance: DOXORUBICIN
     Dosage: 7TH CYCLE
     Route: 065
     Dates: start: 20210429
  31. DOXORUBICIN [Suspect]
     Active Substance: DOXORUBICIN
     Dosage: 8TH CYCLE
     Route: 065
     Dates: start: 20210520, end: 20210521
  32. DOXORUBICIN [Suspect]
     Active Substance: DOXORUBICIN
     Dosage: 1ST CYCLE
     Route: 065
     Dates: start: 20201215, end: 20201218
  33. CYTARABINE [Suspect]
     Active Substance: CYTARABINE
     Indication: Diffuse large B-cell lymphoma
     Route: 065
     Dates: start: 20220702, end: 20220704
  34. CYTARABINE [Suspect]
     Active Substance: CYTARABINE
     Route: 065
     Dates: start: 20220607, end: 20220609
  35. KYMRIAH [Suspect]
     Active Substance: TISAGENLECLEUCEL
     Indication: Diffuse large B-cell lymphoma
     Dosage: UNK UNK,
     Route: 065
     Dates: start: 20221207
  36. BENDAMUSTINE [Suspect]
     Active Substance: BENDAMUSTINE
     Indication: Diffuse large B-cell lymphoma
     Route: 065
     Dates: start: 20220916, end: 20220918
  37. BENDAMUSTINE [Suspect]
     Active Substance: BENDAMUSTINE
     Route: 065
     Dates: start: 20221007, end: 20221008
  38. BENDAMUSTINE [Suspect]
     Active Substance: BENDAMUSTINE
     Route: 065
     Dates: start: 20221127, end: 20221128
  39. PREDNISONE [Suspect]
     Active Substance: PREDNISONE
     Indication: Diffuse large B-cell lymphoma
     Dosage: 8TH CYCLE
     Route: 065
     Dates: start: 20210520, end: 20210521
  40. PREDNISONE [Suspect]
     Active Substance: PREDNISONE
     Route: 065
     Dates: start: 20210406, end: 20210407
  41. PREDNISONE [Suspect]
     Active Substance: PREDNISONE
     Route: 065
     Dates: start: 20211215, end: 20211218
  42. PREDNISONE [Suspect]
     Active Substance: PREDNISONE
     Route: 065
     Dates: start: 20210219, end: 20210220
  43. PREDNISONE [Suspect]
     Active Substance: PREDNISONE
     Dosage: 2ND CYCLE
     Route: 065
     Dates: start: 20210105, end: 20210106
  44. PREDNISONE [Suspect]
     Active Substance: PREDNISONE
     Dosage: 7TH CYCLE
     Route: 065
     Dates: start: 20210429
  45. PREDNISONE [Suspect]
     Active Substance: PREDNISONE
     Dosage: 5TH CYCLE
     Route: 065
     Dates: start: 20210315, end: 20210316
  46. PREDNISONE [Suspect]
     Active Substance: PREDNISONE
     Dosage: 3RD CYCLE
     Route: 065
     Dates: start: 20210129, end: 20210130
  47. CISPLATIN [Suspect]
     Active Substance: CISPLATIN
     Indication: Diffuse large B-cell lymphoma
     Route: 065
     Dates: start: 20220607, end: 20220609
  48. CISPLATIN [Suspect]
     Active Substance: CISPLATIN
     Route: 065
     Dates: start: 20220702, end: 20220704
  49. VINCRISTINE [Suspect]
     Active Substance: VINCRISTINE
     Indication: Diffuse large B-cell lymphoma
     Dosage: 2ND CYCLE
     Route: 065
     Dates: start: 20210105, end: 20210106
  50. VINCRISTINE [Suspect]
     Active Substance: VINCRISTINE
     Dosage: 8TH CYCLE
     Route: 065
     Dates: start: 20210520, end: 20210521
  51. VINCRISTINE [Suspect]
     Active Substance: VINCRISTINE
     Dosage: 6TH CYCLE
     Route: 065
     Dates: start: 20210406, end: 20210407
  52. VINCRISTINE [Suspect]
     Active Substance: VINCRISTINE
     Dosage: 7TH CYCLE
     Route: 065
     Dates: start: 20210429
  53. VINCRISTINE [Suspect]
     Active Substance: VINCRISTINE
     Dosage: 1ST CYCLE
     Route: 065
     Dates: start: 20211215, end: 20211218
  54. VINCRISTINE [Suspect]
     Active Substance: VINCRISTINE
     Dosage: 4THC CYCLE
     Route: 065
     Dates: start: 20210219, end: 20210220
  55. VINCRISTINE [Suspect]
     Active Substance: VINCRISTINE
     Dosage: 3RD CYCLE
     Route: 065
     Dates: start: 20210129, end: 20210130
  56. VINCRISTINE [Suspect]
     Active Substance: VINCRISTINE
     Dosage: 5TH CYCLE
     Route: 065
     Dates: start: 20210315, end: 20210316
  57. METHOTREXATE [Suspect]
     Active Substance: METHOTREXATE
     Indication: Diffuse large B-cell lymphoma
     Dosage: 8TH CYCLE
     Route: 065
     Dates: start: 20210520, end: 20210521
  58. METHOTREXATE [Suspect]
     Active Substance: METHOTREXATE
     Dosage: 2ND CYCLE
     Route: 065
     Dates: start: 20210105, end: 20210106
  59. METHOTREXATE [Suspect]
     Active Substance: METHOTREXATE
     Dosage: 7TH CYCLE
     Route: 065
     Dates: start: 20210429
  60. METHOTREXATE [Suspect]
     Active Substance: METHOTREXATE
     Dosage: 6TH CYCLE
     Route: 065
     Dates: start: 20210406, end: 20210407
  61. METHOTREXATE [Suspect]
     Active Substance: METHOTREXATE
     Dosage: 4TH CYCLE
     Route: 065
     Dates: start: 20210219, end: 20210220
  62. METHOTREXATE [Suspect]
     Active Substance: METHOTREXATE
     Dosage: 5TH CYCLE
     Route: 065
     Dates: start: 20210315, end: 20210316
  63. METHOTREXATE [Suspect]
     Active Substance: METHOTREXATE
     Dosage: 3RD CYCLE
     Route: 065
     Dates: start: 20210129, end: 20210130
  64. METHOTREXATE [Suspect]
     Active Substance: METHOTREXATE
     Dosage: 1ST CYCLE
     Route: 065
     Dates: start: 20201215, end: 20201218

REACTIONS (4)
  - Death [Fatal]
  - Thrombocytopenia [Unknown]
  - Immune effector cell-associated neurotoxicity syndrome [Recovered/Resolved]
  - Diffuse large B-cell lymphoma recurrent [Unknown]

NARRATIVE: CASE EVENT DATE: 20230408
